FAERS Safety Report 9797688 (Version 1)
Quarter: 2014Q1

REPORT INFORMATION
  Report Type: Spontaneous
  Country: US (occurrence: US)
  Receive Date: 20140106
  Receipt Date: 20140106
  Transmission Date: 20141002
  Serious: No
  Sender: FDA-Public Use
  Company Number: US-PFIZER INC-2014002522

PATIENT
  Age: 66 Year
  Sex: Male
  Weight: 83.9 kg

DRUGS (2)
  1. CHANTIX [Suspect]
     Indication: CEREBELLAR ATROPHY
     Dosage: 5 MG IN THE MORNING AND 2.5 MG IN THE EVENING, 2X/DAY
  2. CHANTIX [Suspect]
     Indication: ATROPHY

REACTIONS (5)
  - Nervous system disorder [Unknown]
  - Therapeutic response unexpected [Unknown]
  - Speech disorder [Unknown]
  - Balance disorder [Unknown]
  - Off label use [Unknown]
